FAERS Safety Report 5087097-3 (Version None)
Quarter: 2006Q3

REPORT INFORMATION
  Report Type: 
  Country: None (occurrence: None)
  Receive Date: 20060821
  Receipt Date: 20060727
  Transmission Date: 20061208
  Serious: Yes (Hospitalization)
  Sender: FDA-Public Use
  Company Number: RENA-11764

PATIENT
  Age: 59 Year
  Sex: Male

DRUGS (1)
  1. PHOSBLOCK 2 [Suspect]
     Indication: HYPERPHOSPHATAEMIA
     Dosage: 2.25 G DAILY PO
     Route: 048
     Dates: start: 20030101, end: 20060413

REACTIONS (3)
  - ILEUS [None]
  - POSTOPERATIVE ADHESION [None]
  - WEIGHT INCREASED [None]
